FAERS Safety Report 11087417 (Version 1)
Quarter: 2015Q2

REPORT INFORMATION
  Report Type: Spontaneous
  Country: IN (occurrence: IN)
  Receive Date: 20150504
  Receipt Date: 20150504
  Transmission Date: 20150821
  Serious: Yes (Hospitalization, Disabling, Other)
  Sender: FDA-Public Use
  Company Number: IN-AUROBINDO-AUR-APL-2015-03951

PATIENT
  Age: 16 Year
  Sex: Female

DRUGS (2)
  1. SERTRALINE [Suspect]
     Active Substance: SERTRALINE HYDROCHLORIDE
     Dosage: 14 DF, UNK
     Route: 065
  2. SERTRALINE [Suspect]
     Active Substance: SERTRALINE HYDROCHLORIDE
     Indication: DEPRESSION
     Dosage: 50 MG, DAILY
     Route: 065

REACTIONS (12)
  - Oculogyric crisis [Recovered/Resolved]
  - Tremor [Recovered/Resolved]
  - Intentional overdose [None]
  - Abasia [Recovered/Resolved]
  - Joint hyperextension [Recovered/Resolved]
  - Swollen tongue [Recovered/Resolved]
  - Overdose [Recovered/Resolved]
  - Aphasia [Recovered/Resolved]
  - Eye movement disorder [Recovered/Resolved]
  - Extrapyramidal disorder [Recovered/Resolved]
  - Muscle contracture [Recovered/Resolved]
  - Suicide attempt [Recovered/Resolved]
